FAERS Safety Report 6851822-9 (Version None)
Quarter: 2010Q3

REPORT INFORMATION
  Report Type: 
  Country: None (occurrence: None)
  Receive Date: 20100717
  Receipt Date: 20071031
  Transmission Date: 20110219
  Serious: No
  Sender: FDA-Public Use
  Company Number: US-PFIZER INC-2007093154

PATIENT
  Age: 71 Year
  Sex: Female
  Weight: 54.545 kg

DRUGS (5)
  1. CHANTIX [Suspect]
     Indication: SMOKING CESSATION THERAPY
     Dates: start: 20071001
  2. PRAVACHOL [Concomitant]
     Indication: BLOOD CHOLESTEROL
  3. ACETYLSALICYLIC ACID [Concomitant]
  4. VERAPAMIL [Concomitant]
     Indication: BLOOD PRESSURE
  5. BENAZEPRIL HYDROCHLORIDE [Concomitant]
     Indication: BLOOD PRESSURE

REACTIONS (4)
  - ABDOMINAL DISTENSION [None]
  - FLATULENCE [None]
  - MALAISE [None]
  - NAUSEA [None]
